FAERS Safety Report 8433696-8 (Version None)
Quarter: 2012Q2

REPORT INFORMATION
  Report Type: 
  Country: None (occurrence: None)
  Receive Date: 20120613
  Receipt Date: 20120529
  Transmission Date: 20120825
  Serious: Yes (Other)
  Sender: FDA-Public Use
  Company Number: CHPA2012US010689

PATIENT
  Age: 69 Year
  Sex: Female

DRUGS (2)
  1. EXCEDRIN EXTRA STRENGTH TABLETS [Suspect]
     Indication: HEADACHE
     Dosage: 3 DF, BID
     Route: 048
     Dates: start: 19920101
  2. EXCEDRIN PM TABLETS [Suspect]
     Indication: INSOMNIA
     Dosage: 2 DF, QD
     Route: 048
     Dates: start: 19920101

REACTIONS (6)
  - INCORRECT DRUG ADMINISTRATION DURATION [None]
  - DRUG ADMINISTRATION ERROR [None]
  - THROMBOSIS [None]
  - HEADACHE [None]
  - REBOUND EFFECT [None]
  - INCORRECT DOSE ADMINISTERED [None]
